FAERS Safety Report 15852908 (Version 1)
Quarter: 2018Q4

REPORT INFORMATION
  Report Type: Spontaneous
  Country: US (occurrence: US)
  Receive Date: 20181226
  Receipt Date: 20181226
  Transmission Date: 20190205
  Serious: No
  Sender: FDA-Public Use
  Company Number: None

PATIENT
  Age: 75 Year
  Sex: Female

DRUGS (1)
  1. XALKORI [Suspect]
     Active Substance: CRIZOTINIB
     Dates: start: 20180522

REACTIONS (4)
  - Diarrhoea [None]
  - Musculoskeletal chest pain [None]
  - Post procedural complication [None]
  - Inflammation [None]

NARRATIVE: CASE EVENT DATE: 20181224
